FAERS Safety Report 17566554 (Version 2)
Quarter: 2020Q1

REPORT INFORMATION
  Report Type: Report from Study
  Country: ES (occurrence: ES)
  Receive Date: 20200320
  Receipt Date: 20200327
  Transmission Date: 20200409
  Serious: Yes (Other)
  Sender: FDA-Public Use
  Company Number: ES-PFIZER INC-2020116435

PATIENT
  Age: 63 Year
  Sex: Male
  Weight: 78.8 kg

DRUGS (18)
  1. ENVARSUS XR [Suspect]
     Active Substance: TACROLIMUS
     Dosage: 12 MG, 1X/DAY
     Dates: start: 20181124
  2. URSODEOXYCHOLIC ACID [Concomitant]
     Active Substance: URSODIOL
     Dosage: 300 MG, 2X/DAY
     Route: 065
     Dates: start: 20181213
  3. CARVEDILOL. [Concomitant]
     Active Substance: CARVEDILOL
     Indication: HYPERTENSION
     Dosage: 6.25 MG, 2X/DAY
     Route: 065
  4. ENVARSUS XR [Suspect]
     Active Substance: TACROLIMUS
     Dosage: 12 MG, 1X/DAY
     Dates: start: 20181208
  5. ENVARSUS XR [Suspect]
     Active Substance: TACROLIMUS
     Dosage: UNK
  6. ENVARSUS XR [Suspect]
     Active Substance: TACROLIMUS
     Dosage: 8 MG, 1X/DAY
     Dates: start: 20181120
  7. ENVARSUS XR [Suspect]
     Active Substance: TACROLIMUS
     Dosage: 10 MG, 1X/DAY
     Dates: start: 20181213
  8. LANTUS [Concomitant]
     Active Substance: INSULIN GLARGINE
     Indication: TYPE 2 DIABETES MELLITUS
     Dosage: 10-40 UI/24H
     Route: 065
  9. ENVARSUS XR [Suspect]
     Active Substance: TACROLIMUS
     Indication: LIVER TRANSPLANT
     Dosage: 4 MG, 1X/DAY
     Dates: start: 20181116
  10. ENVARSUS XR [Suspect]
     Active Substance: TACROLIMUS
     Dosage: 9 MG, 1X/DAY
     Dates: start: 20181122
  11. QUETIAPINE. [Concomitant]
     Active Substance: QUETIAPINE
     Dosage: 25 MG, 1X/DAY
     Route: 065
     Dates: start: 20181119, end: 20181212
  12. ENVARSUS XR [Suspect]
     Active Substance: TACROLIMUS
     Dosage: 6 MG, 1X/DAY
     Dates: start: 20181118
  13. QUETIAPINE. [Concomitant]
     Active Substance: QUETIAPINE
     Indication: INSOMNIA
     Dosage: 12.5 MG, 1X/DAY
     Route: 065
     Dates: start: 20181116, end: 20181119
  14. TIGECYCLINE. [Concomitant]
     Active Substance: TIGECYCLINE
     Indication: BILIARY TRACT INFECTION
     Dosage: 50 MG, 2X/DAY
     Route: 065
     Dates: start: 20181127, end: 20181210
  15. PIPERACILLIN AND TAZOBACTAM [Concomitant]
     Active Substance: PIPERACILLIN SODIUM\TAZOBACTAM SODIUM
     Indication: BILIARY TRACT INFECTION
     Dosage: 4 G, 4X/DAY
     Route: 065
     Dates: start: 20181123, end: 20181127
  16. APIDRA [Concomitant]
     Active Substance: INSULIN GLULISINE
     Indication: TYPE 2 DIABETES MELLITUS
     Dosage: 6-8 UI
     Route: 065
  17. URSODEOXYCHOLIC ACID [Concomitant]
     Active Substance: URSODIOL
     Indication: BILIARY TRACT INFECTION
     Dosage: 150 MG
     Route: 065
     Dates: start: 20181129, end: 20181212
  18. ENVARSUS XR [Suspect]
     Active Substance: TACROLIMUS
     Dosage: 14 MG, 1X/DAY
     Dates: start: 20181127

REACTIONS (3)
  - Transplant rejection [Recovered/Resolved]
  - Blood potassium increased [Recovered/Resolved]
  - Renal impairment [Recovered/Resolved]

NARRATIVE: CASE EVENT DATE: 20181114
